FAERS Safety Report 21833978 (Version 3)
Quarter: 2023Q1

REPORT INFORMATION
  Report Type: Report from Study
  Country: US (occurrence: US)
  Receive Date: 20230108
  Receipt Date: 20230209
  Transmission Date: 20230417
  Serious: Yes (Hospitalization)
  Sender: FDA-Public Use
  Company Number: US-ABBVIE-4227055

PATIENT
  Age: 6 Year
  Sex: Male

DRUGS (2)
  1. HUMIRA [Suspect]
     Active Substance: ADALIMUMAB
     Indication: Crohn^s disease
     Route: 058
  2. HUMIRA [Suspect]
     Active Substance: ADALIMUMAB
     Route: 058
     Dates: start: 20220111

REACTIONS (15)
  - Hospitalisation [Unknown]
  - Oropharyngeal pain [Recovering/Resolving]
  - Ear infection [Recovering/Resolving]
  - Constipation [Unknown]
  - Pharyngeal abscess [Recovering/Resolving]
  - Rhinovirus infection [Recovered/Resolved]
  - Gastric dilatation [Unknown]
  - Vomiting [Unknown]
  - Gait disturbance [Unknown]
  - Rhinovirus infection [Unknown]
  - Adverse drug reaction [Unknown]
  - Crohn^s disease [Not Recovered/Not Resolved]
  - Swelling [Unknown]
  - Pharyngitis streptococcal [Unknown]
  - Injection site reaction [Unknown]

NARRATIVE: CASE EVENT DATE: 20221201
